FAERS Safety Report 4984535-9 (Version None)
Quarter: 2006Q2

REPORT INFORMATION
  Report Type: 
  Country: None (occurrence: None)
  Receive Date: 20060421
  Receipt Date: 20060407
  Transmission Date: 20061013
  Serious: No
  Sender: FDA-Public Use
  Company Number: 06-0048PO

PATIENT
  Age: 50 Year
  Sex: Male

DRUGS (4)
  1. PONSTEL [Suspect]
     Indication: ILL-DEFINED DISORDER
     Dosage: UNKNOWN
     Route: 065
  2. PLENDIL [Suspect]
     Indication: ILL-DEFINED DISORDER
     Dosage: UNKOWN
     Route: 065
  3. PLENDIL [Suspect]
     Indication: ILL-DEFINED DISORDER
     Dosage: UNK
     Route: 065
  4. ANTI-HYPERTENSIVE MEDICATION [Concomitant]

REACTIONS (4)
  - ANAL ABSCESS [None]
  - ANAL FISTULA EXCISION [None]
  - PAIN [None]
  - URTICARIA [None]
